FAERS Safety Report 17277190 (Version 1)
Quarter: 2020Q1

REPORT INFORMATION
  Report Type: Spontaneous
  Country: US (occurrence: US)
  Receive Date: 20200116
  Receipt Date: 20200116
  Transmission Date: 20200409
  Serious: Yes (Death, Hospitalization)
  Sender: FDA-Public Use
  Company Number: US-APOTEX-2020AP006492

PATIENT
  Age: 26 Year
  Sex: Male

DRUGS (4)
  1. ISOPHANE INSULIN [Suspect]
     Active Substance: INSULIN NOS
     Indication: PRODUCT USED FOR UNKNOWN INDICATION
     Dosage: UNK, UNKNOWN
     Route: 048
  2. ISOPHANE INSULIN [Suspect]
     Active Substance: INSULIN NOS
     Dosage: UNK
     Route: 051
  3. ACETAMINOPHEN/DEXTROMETHORPHAN/DOXYLAMINE [Suspect]
     Active Substance: ACETAMINOPHEN\DEXTROMETHORPHAN HYDROBROMIDE\DOXYLAMINE SUCCINATE
     Indication: PRODUCT USED FOR UNKNOWN INDICATION
     Dosage: UNK, UNKNOWN
     Route: 048
  4. ACETAMINOPHEN/DEXTROMETHORPHAN/DOXYLAMINE [Suspect]
     Active Substance: ACETAMINOPHEN\DEXTROMETHORPHAN HYDROBROMIDE\DOXYLAMINE SUCCINATE
     Dosage: UNK
     Route: 051

REACTIONS (1)
  - Medication error [Fatal]

NARRATIVE: CASE EVENT DATE: 2018
